FAERS Safety Report 15282264 (Version 1)
Quarter: 2018Q3

REPORT INFORMATION
  Report Type: Spontaneous
  Country: US (occurrence: US)
  Receive Date: 20180815
  Receipt Date: 20180815
  Transmission Date: 20181010
  Serious: No
  Sender: FDA-Public Use
  Company Number: US-BAXTER-2018BAX021582

PATIENT
  Sex: Female

DRUGS (1)
  1. VANCOMYCIN INJECTION, USP [Suspect]
     Active Substance: VANCOMYCIN
     Indication: OSTEOMYELITIS
     Dosage: VANCOMYCIN WAS PRESCRIBED FOR SIX WEEKS AND WAS TAKING FROM ABOUT 3 WEEKS
     Route: 042

REACTIONS (1)
  - Peripheral swelling [Unknown]
